FAERS Safety Report 24899487 (Version 1)
Quarter: 2025Q1

REPORT INFORMATION
  Report Type: Spontaneous
  Country: AR (occurrence: AR)
  Receive Date: 20250129
  Receipt Date: 20250129
  Transmission Date: 20250409
  Serious: Yes (Other)
  Sender: PFIZER
  Company Number: AR-PFIZER INC-PV202500011649

PATIENT
  Age: 39 Year
  Sex: Female
  Weight: 58 kg

DRUGS (1)
  1. LORLATINIB [Suspect]
     Active Substance: LORLATINIB

REACTIONS (8)
  - Coeliac disease [Recovering/Resolving]
  - Dyspnoea [Recovering/Resolving]
  - Device related infection [Unknown]
  - Diarrhoea [Recovering/Resolving]
  - Weight increased [Unknown]
  - Body dysmorphic disorder [Unknown]
  - Anxiety disorder [Recovering/Resolving]
  - Appetite disorder [Recovered/Resolved]
